FAERS Safety Report 6531591-2 (Version None)
Quarter: 2010Q1

REPORT INFORMATION
  Report Type: 
  Country: None (occurrence: None)
  Receive Date: 20100108
  Receipt Date: 20091029
  Transmission Date: 20100710
  Serious: No
  Sender: FDA-Public Use
  Company Number: A0829328A

PATIENT
  Age: 78 Year
  Sex: Female
  Weight: 53 kg

DRUGS (1)
  1. EXTINA [Suspect]
     Indication: DANDRUFF
     Route: 061
     Dates: start: 20090801, end: 20090801

REACTIONS (1)
  - APPLICATION SITE ALOPECIA [None]
